FAERS Safety Report 9556076 (Version 1)
Quarter: 2013Q3

REPORT INFORMATION
  Report Type: Spontaneous
  Country: US (occurrence: None)
  Receive Date: 20130726
  Receipt Date: 20130726
  Transmission Date: 20140515
  Serious: Yes (Hospitalization)
  Sender: FDA-Public Use
  Company Number: UTC-022904

PATIENT
  Age: 48 Year
  Sex: Male
  Weight: 65.9 kg

DRUGS (5)
  1. REMODULIN (5 MILLIGRAM/MILLILITERS, INJECTION FOR INFUSION) (TREPROSTINIL SODIUM) [Suspect]
     Indication: COR PULMONALE CHRONIC
     Dosage: 14.4 UG/KG (0.01 UG/KG, 1 IN 1 MIN), SUBCUTANEOUS
     Route: 058
     Dates: start: 20110511
  2. REVATIO (SILDENAFIL CITRATE) (UNKNOWN) (SILDENAFIL) [Concomitant]
  3. LETAIRIS (AMBRISENTAN) (TABLETS) [Concomitant]
  4. LASIX (FUROSEMIDE) [Concomitant]
  5. DIGOXIN [Concomitant]

REACTIONS (3)
  - Pulmonary hypertension [None]
  - Drug dose omission [None]
  - Device dislocation [None]
